FAERS Safety Report 11897298 (Version 1)
Quarter: 2016Q1

REPORT INFORMATION
  Report Type: Spontaneous
  Country: FR (occurrence: FR)
  Receive Date: 20160108
  Receipt Date: 20160108
  Transmission Date: 20160526
  Serious: Yes (Other)
  Sender: FDA-Public Use
  Company Number: FR-AMGEN-FRASP2015140493

PATIENT
  Age: 80 Year
  Sex: Female

DRUGS (11)
  1. TAMOXIFEN [Concomitant]
     Active Substance: TAMOXIFEN
     Dosage: 20 MG, QD
     Route: 048
     Dates: start: 20150227, end: 20151012
  2. PARACETAMOL [Concomitant]
     Active Substance: ACETAMINOPHEN
     Dosage: 500 MG, UNK
     Route: 047
  3. TAMOXIFEN SANDOZ [Concomitant]
     Active Substance: TAMOXIFEN
     Dosage: 20 MG, QD
     Route: 048
     Dates: start: 20150227, end: 20151012
  4. TEMESTA                            /00273201/ [Concomitant]
     Active Substance: LORAZEPAM
     Dosage: 2 MG, QD
     Route: 048
  5. MEGACE [Concomitant]
     Active Substance: MEGESTROL ACETATE
     Dosage: 160 MG, QD
     Route: 048
     Dates: start: 20151012
  6. BETAXOLOL. [Concomitant]
     Active Substance: BETAXOLOL
     Dosage: 10 MG (20 MG (1/2)), QD
     Route: 048
  7. AROMASINE [Concomitant]
     Active Substance: EXEMESTANE
     Dosage: 25 MG, QD
     Route: 048
     Dates: start: 201310, end: 20150227
  8. OROCAL D3 [Concomitant]
     Active Substance: CALCIUM CARBONATE\CHOLECALCIFEROL
     Dosage: UNK
     Route: 048
     Dates: start: 201308
  9. COAPROVEL [Concomitant]
     Active Substance: HYDROCHLOROTHIAZIDE\IRBESARTAN
     Dosage: 300 MG/12.5 MG, QD
     Route: 048
  10. XGEVA [Suspect]
     Active Substance: DENOSUMAB
     Indication: PRODUCT USED FOR UNKNOWN INDICATION
     Dosage: 4.285 MG (120 MG), Q4WK
     Route: 058
     Dates: start: 201308, end: 20150423
  11. FLECAINE [Concomitant]
     Active Substance: FLECAINIDE
     Dosage: 100 MG, QD
     Route: 048

REACTIONS (1)
  - Osteonecrosis of jaw [Not Recovered/Not Resolved]

NARRATIVE: CASE EVENT DATE: 2014
